FAERS Safety Report 8314229-3 (Version None)
Quarter: 2012Q2

REPORT INFORMATION
  Report Type: 
  Country: None (occurrence: None)
  Receive Date: 20120426
  Receipt Date: 20120419
  Transmission Date: 20120825
  Serious: Yes (Other)
  Sender: FDA-Public Use
  Company Number: PHHO2012GB006186

PATIENT
  Sex: Female
  Weight: 59 kg

DRUGS (1)
  1. ZOLEDRONOC ACID [Suspect]
     Indication: METASTASES TO BONE
     Dosage: 4 MG, UNK
     Route: 042
     Dates: start: 20051202, end: 20101006

REACTIONS (1)
  - OSTEONECROSIS OF JAW [None]
